FAERS Safety Report 17358796 (Version 2)
Quarter: 2020Q1

REPORT INFORMATION
  Report Type: Spontaneous
  Country: US (occurrence: US)
  Receive Date: 20200202
  Receipt Date: 20200205
  Transmission Date: 20200409
  Serious: Yes (Hospitalization)
  Sender: FDA-Public Use
  Company Number: US-BIOGEN-2020BI00832068

PATIENT
  Age: 56 Year
  Sex: Female

DRUGS (1)
  1. TYSABRI [Suspect]
     Active Substance: NATALIZUMAB
     Indication: MULTIPLE SCLEROSIS
     Dosage: INFUSED OVER 1 HOUR
     Route: 042
     Dates: start: 20190822

REACTIONS (14)
  - Nephrolithiasis [Recovered/Resolved]
  - Mobility decreased [Unknown]
  - Dizziness [Unknown]
  - Dehydration [Unknown]
  - Gait disturbance [Unknown]
  - Malaise [Recovered/Resolved]
  - Sepsis [Recovered/Resolved]
  - Limb discomfort [Unknown]
  - Hypoaesthesia [Unknown]
  - Fatigue [Unknown]
  - Asthenia [Unknown]
  - Disturbance in attention [Unknown]
  - Memory impairment [Unknown]
  - Dry mouth [Unknown]

NARRATIVE: CASE EVENT DATE: 20200110
